FAERS Safety Report 9672028 (Version 1)
Quarter: 2013Q4

REPORT INFORMATION
  Report Type: Spontaneous
  Country: FR (occurrence: FR)
  Receive Date: 20131106
  Receipt Date: 20131106
  Transmission Date: 20140711
  Serious: Yes (Hospitalization)
  Sender: FDA-Public Use
  Company Number: FR-GLAXOSMITHKLINE-B0930206A

PATIENT
  Age: 32 Year
  Sex: Female

DRUGS (6)
  1. LAMICTAL [Suspect]
     Indication: EPILEPSY
     Route: 048
  2. EUPHYTOSE [Suspect]
     Dosage: 1TAB PER DAY
     Route: 048
     Dates: start: 20130530
  3. RIVOTRIL [Concomitant]
     Indication: EPILEPSY
     Route: 048
  4. ROVAMYCINE [Concomitant]
     Indication: LUNG DISORDER
     Dates: start: 201305, end: 201306
  5. FLAGYL [Concomitant]
     Indication: LUNG DISORDER
     Dates: start: 201305, end: 201306
  6. OXYGEN THERAPY [Concomitant]
     Indication: LUNG DISORDER
     Route: 055
     Dates: start: 20130528, end: 20130530

REACTIONS (9)
  - Epilepsy [Recovered/Resolved]
  - Loss of consciousness [Recovered/Resolved]
  - Postictal headache [Unknown]
  - Hypotonia [Unknown]
  - Somnolence [Recovering/Resolving]
  - Postictal state [Unknown]
  - Tongue biting [Recovered/Resolved]
  - Drug clearance increased [Not Recovered/Not Resolved]
  - Exposure during pregnancy [Unknown]
